FAERS Safety Report 4294048-8 (Version None)
Quarter: 2004Q1

REPORT INFORMATION
  Report Type: 
  Country: None (occurrence: None)
  Receive Date: 20040211
  Receipt Date: 20040129
  Transmission Date: 20041129
  Serious: Yes (Death, Life-Threatening)
  Sender: FDA-Public Use
  Company Number: 2004006550

PATIENT
  Age: 36 Year
  Sex: Male

DRUGS (3)
  1. SILDENAFIL (SILDENAFIL) [Suspect]
     Indication: ILL-DEFINED DISORDER
     Dosage: 100 MG, ORAL
     Route: 048
     Dates: start: 19990101
  2. TESTOSTERONE [Suspect]
     Indication: ILL-DEFINED DISORDER
     Dosage: 120 MG (TID), ORAL
     Route: 048
     Dates: start: 19970101
  3. BISOPROLOL FUMARATE [Concomitant]

REACTIONS (2)
  - HAEMORRHAGE [None]
  - SUDDEN DEATH [None]
